FAERS Safety Report 5815689-X (Version None)
Quarter: 2008Q3

REPORT INFORMATION
  Report Type: 
  Country: None (occurrence: None)
  Receive Date: 20080716
  Receipt Date: 20080707
  Transmission Date: 20090109
  Serious: Yes (Other)
  Sender: FDA-Public Use
  Company Number: 2008018106

PATIENT
  Sex: Female

DRUGS (1)
  1. ZYRTEC [Suspect]

REACTIONS (3)
  - DEPRESSION [None]
  - NAUSEA [None]
  - VISION BLURRED [None]
